FAERS Safety Report 4996780-7 (Version None)
Quarter: 2006Q2

REPORT INFORMATION
  Report Type: 
  Country: None (occurrence: None)
  Receive Date: 20060509
  Receipt Date: 20051006
  Transmission Date: 20061013
  Serious: Yes (Disabling)
  Sender: FDA-Public Use
  Company Number: US-MERCK-0510USA05856

PATIENT
  Age: 36 Year
  Sex: Male
  Weight: 126 kg

DRUGS (5)
  1. VIOXX [Suspect]
     Indication: ARTHRITIS
     Route: 048
     Dates: start: 20020101, end: 20040501
  2. VIOXX [Suspect]
     Route: 048
     Dates: start: 20020101, end: 20040501
  3. VIOXX [Suspect]
     Indication: BACK PAIN
     Route: 048
     Dates: start: 20020101, end: 20040501
  4. VIOXX [Suspect]
     Route: 048
     Dates: start: 20020101, end: 20040501
  5. IBUPROFEN [Concomitant]
     Route: 065

REACTIONS (19)
  - ANGINA PECTORIS [None]
  - ARTHROPATHY [None]
  - BACK INJURY [None]
  - BLOOD CHOLESTEROL ABNORMAL [None]
  - CARDIAC MURMUR [None]
  - CHEST PAIN [None]
  - GASTROOESOPHAGEAL REFLUX DISEASE [None]
  - HEART INJURY [None]
  - HEART RATE IRREGULAR [None]
  - HYPERTENSION [None]
  - MAJOR DEPRESSION [None]
  - MENISCUS LESION [None]
  - NIGHT SWEATS [None]
  - OSTEOARTHRITIS [None]
  - PALPITATIONS [None]
  - PHARYNGOLARYNGEAL PAIN [None]
  - SHOULDER PAIN [None]
  - TENDON RUPTURE [None]
  - VENTRICULAR EXTRASYSTOLES [None]
